FAERS Safety Report 7306242-X (Version None)
Quarter: 2011Q1

REPORT INFORMATION
  Report Type: 
  Country: None (occurrence: None)
  Receive Date: 20110210
  Receipt Date: 20110126
  Transmission Date: 20110831
  Serious: Yes (Hospitalization)
  Sender: FDA-Public Use
  Company Number: 016791

PATIENT
  Sex: Female
  Weight: 52.8 kg

DRUGS (9)
  1. PREDNISOLONE [Suspect]
     Indication: RHEUMATOID ARTHRITIS
     Dosage: (2.5 MG ORAL)
     Route: 048
     Dates: start: 19981218
  2. ISONIAZID [Concomitant]
  3. CERTOLIZUMAB PEGOL (CERTOLIZUMAB PEGOL) [Suspect]
     Indication: RHEUMATOID ARTHRITIS
     Dosage: (200 MG, C87041 SUBCUTANEOUS) ; (400 MG 1X/4 WEEKS SUBCUTANEOUS)
     Route: 058
     Dates: start: 20100421, end: 20100715
  4. CERTOLIZUMAB PEGOL (CERTOLIZUMAB PEGOL) [Suspect]
     Indication: RHEUMATOID ARTHRITIS
     Dosage: (200 MG, C87041 SUBCUTANEOUS) ; (400 MG 1X/4 WEEKS SUBCUTANEOUS)
     Route: 058
     Dates: start: 20091007, end: 20100408
  5. FELBINAC [Concomitant]
  6. ETODOLAC [Concomitant]
  7. METHOTREXATE [Suspect]
     Indication: RHEUMATOID ARTHRITIS
     Dosage: (6MG(4MG - 2MG)/WEEK ORAL)
     Route: 048
     Dates: start: 20090613
  8. SOFALCONE [Concomitant]
  9. KETOPROFEN [Concomitant]

REACTIONS (13)
  - ACTIVATED PARTIAL THROMBOPLASTIN TIME PROLONGED [None]
  - CEREBRAL HAEMATOMA [None]
  - SUBARACHNOID HAEMORRHAGE [None]
  - HYDROCEPHALUS [None]
  - HYPERTENSION [None]
  - CEREBELLAR ATROPHY [None]
  - MENINGITIS [None]
  - PERIARTHRITIS [None]
  - RUPTURED CEREBRAL ANEURYSM [None]
  - QUADRIPLEGIA [None]
  - CEREBROVASCULAR SPASM [None]
  - ACTIVITIES OF DAILY LIVING IMPAIRED [None]
  - PROTHROMBIN TIME PROLONGED [None]
